FAERS Safety Report 6386424-4 (Version None)
Quarter: 2009Q4

REPORT INFORMATION
  Report Type: 
  Country: None (occurrence: None)
  Receive Date: 20091002
  Receipt Date: 20090928
  Transmission Date: 20100525
  Serious: Yes (Death, Hospitalization, Other)
  Sender: FDA-Public Use
  Company Number: US-ASTRAZENECA-2009UW07145

PATIENT
  Age: 82 Year
  Sex: Male

DRUGS (7)
  1. NEXIUM [Suspect]
     Route: 048
  2. ZOCOR [Concomitant]
  3. HYTRIN [Concomitant]
  4. PLAVIX [Concomitant]
  5. ASPIRIN [Concomitant]
  6. FUROSEMIDE [Concomitant]
  7. ALBUTEROL IPRATROPIUM AND PULMICORT NEBULISER [Concomitant]

REACTIONS (8)
  - ANOXIC ENCEPHALOPATHY [None]
  - BLADDER DISORDER [None]
  - CARDIO-RESPIRATORY ARREST [None]
  - CEREBROVASCULAR ACCIDENT [None]
  - CHRONIC OBSTRUCTIVE PULMONARY DISEASE [None]
  - DEATH [None]
  - HYPONATRAEMIA [None]
  - PROSTATIC DISORDER [None]
